FAERS Safety Report 6888093-3 (Version None)
Quarter: 2010Q3

REPORT INFORMATION
  Report Type: 
  Country: None (occurrence: None)
  Receive Date: 20100723
  Receipt Date: 20100714
  Transmission Date: 20110219
  Serious: Yes (Hospitalization)
  Sender: FDA-Public Use
  Company Number: GER/UKI/10/0013483

PATIENT
  Age: 57 Year
  Sex: Male

DRUGS (2)
  1. CETIRIZINE HCL [Suspect]
     Indication: RASH
     Dosage: 10 MG, 4 IN 1 D, ORAL
     Route: 048
     Dates: start: 20100524, end: 20100525
  2. STEROIDS [Concomitant]

REACTIONS (3)
  - HYPERTENSION [None]
  - MALAISE [None]
  - PARAESTHESIA [None]
